FAERS Safety Report 8924186 (Version 1)
Quarter: 2012Q4

REPORT INFORMATION
  Report Type: Spontaneous
  Country: US (occurrence: None)
  Receive Date: 20121121
  Receipt Date: 20121121
  Transmission Date: 20130627
  Serious: Yes (Hospitalization)
  Sender: FDA-Public Use
  Company Number: None

PATIENT
  Sex: Female
  Weight: 63.41 kg

DRUGS (1)
  1. ZOLEDRONIC ACID [Suspect]

REACTIONS (3)
  - Small intestinal obstruction [None]
  - Hiatus hernia [None]
  - Hypertension [None]
